FAERS Safety Report 10026080 (Version 1)
Quarter: 2014Q1

REPORT INFORMATION
  Report Type: Spontaneous
  Country: IN (occurrence: IN)
  Receive Date: 20140320
  Receipt Date: 20140320
  Transmission Date: 20141002
  Serious: Yes (Hospitalization)
  Sender: FDA-Public Use
  Company Number: IN-MYLANLABS-2014S1005388

PATIENT
  Age: 44 Year
  Sex: Female

DRUGS (4)
  1. NEVIRAPINE [Suspect]
     Indication: HIV INFECTION
     Route: 065
  2. LAMIVUDINE [Concomitant]
     Indication: HIV INFECTION
     Route: 065
  3. EFAVIRENZ [Concomitant]
     Indication: HIV INFECTION
     Route: 065
  4. SODIUM VALPROATE [Concomitant]
     Route: 065

REACTIONS (2)
  - Stevens-Johnson syndrome [Recovering/Resolving]
  - Oculomucocutaneous syndrome [Unknown]
